FAERS Safety Report 5368012-1 (Version None)
Quarter: 2007Q2

REPORT INFORMATION
  Report Type: 
  Country: None (occurrence: None)
  Receive Date: 20070622
  Receipt Date: 20070614
  Transmission Date: 20071010
  Serious: Yes (Hospitalization)
  Sender: FDA-Public Use
  Company Number: TH-GENENTECH-243032

PATIENT
  Sex: Female
  Weight: 84 kg

DRUGS (4)
  1. RITUXIMAB [Suspect]
     Indication: B-CELL LYMPHOMA
     Dosage: 450 MG, UNKNOWN
     Route: 042
     Dates: start: 20060813
  2. CYCLOPHOSPHAMIDE [Suspect]
     Indication: B-CELL LYMPHOMA
     Dosage: 240 MG, UNKNOWN
     Route: 042
     Dates: start: 20060521
  3. MITOXANTRONE [Suspect]
     Dosage: 7 MG, UNKNOWN
     Route: 042
     Dates: start: 20060521
  4. FLUDARABINE PHOSPHATE [Suspect]
     Indication: B-CELL LYMPHOMA
     Dosage: UNK, UNKNOWN
     Route: 042
     Dates: start: 20070521

REACTIONS (1)
  - PULMONARY TUBERCULOSIS [None]
